FAERS Safety Report 17273861 (Version 1)
Quarter: 2020Q1

REPORT INFORMATION
  Report Type: Spontaneous
  Country: CA (occurrence: CA)
  Receive Date: 20191224
  Receipt Date: 20191224
  Transmission Date: 20200409
  Serious: No
  Sender: FDA-Public Use
  Company Number: None

PATIENT
  Age: 54 Year
  Sex: Female

DRUGS (2)
  1. UDREAM [Suspect]
     Active Substance: HERBALS
     Indication: SLEEP DISORDER
  2. ZINC. [Concomitant]
     Active Substance: ZINC

REACTIONS (2)
  - Sluggishness [None]
  - Dysgeusia [None]

NARRATIVE: CASE EVENT DATE: 20190520
